FAERS Safety Report 6021395-1 (Version None)
Quarter: 2008Q4

REPORT INFORMATION
  Report Type: 
  Country: None (occurrence: None)
  Receive Date: 20081229
  Receipt Date: 20081219
  Transmission Date: 20090506
  Serious: Yes (Hospitalization)
  Sender: FDA-Public Use
  Company Number: B0551259A

PATIENT
  Age: 70 Year
  Sex: Female

DRUGS (13)
  1. CLAMOXYL [Suspect]
     Indication: BRONCHIAL OBSTRUCTION
     Dosage: 1G PER DAY
     Route: 048
     Dates: start: 20080926, end: 20080927
  2. RULID [Concomitant]
     Route: 048
     Dates: start: 20080928
  3. NOVOLOG MIX 70/30 [Concomitant]
     Route: 065
  4. DETENSIEL [Concomitant]
     Route: 065
  5. EUPRESSYL [Concomitant]
     Route: 065
  6. LOXEN [Concomitant]
     Route: 065
  7. ESIDRIX [Concomitant]
     Route: 065
  8. TAHOR [Concomitant]
     Route: 065
  9. NOVONORM [Concomitant]
     Route: 065
  10. NITROGLYCERIN [Concomitant]
     Route: 065
  11. TRIATEC [Concomitant]
     Route: 065
  12. HYPERIUM [Concomitant]
     Route: 065
  13. KARDEGIC [Concomitant]
     Route: 065

REACTIONS (9)
  - DERMATITIS BULLOUS [None]
  - DERMATITIS EXFOLIATIVE [None]
  - DYSPNOEA [None]
  - FUNGAL INFECTION [None]
  - NIKOLSKY'S SIGN [None]
  - PAIN [None]
  - RASH PAPULAR [None]
  - SKIN EXFOLIATION [None]
  - TOXIC SKIN ERUPTION [None]
